FAERS Safety Report 5074373-3 (Version None)
Quarter: 2006Q3

REPORT INFORMATION
  Report Type: 
  Country: None (occurrence: None)
  Receive Date: 20060803
  Receipt Date: 20060719
  Transmission Date: 20061208
  Serious: Yes (Hospitalization)
  Sender: FDA-Public Use
  Company Number: 2006S1006708

PATIENT
  Age: 23 Year
  Sex: Male
  Weight: 60.782 kg

DRUGS (4)
  1. AMITRIPTYLINE HCL [Suspect]
     Indication: MIGRAINE PROPHYLAXIS
     Dosage: 50 MG QD PO
     Route: 048
     Dates: start: 20040413, end: 20040719
  2. ELETRIPTAN HYDROBROMIDE [Concomitant]
  3. COUGH AND COLD PREPARATIONS [Concomitant]
  4. EXCEDRIN /00110301/ [Concomitant]

REACTIONS (9)
  - BRAIN COMPRESSION [None]
  - BRAIN NEOPLASM [None]
  - CRANIOPHARYNGIOMA [None]
  - DRUG INEFFECTIVE [None]
  - GLIOMA [None]
  - NUCLEAR MAGNETIC RESONANCE IMAGING BRAIN ABNORMAL [None]
  - OPTIC NEURITIS [None]
  - PITUITARY TUMOUR BENIGN [None]
  - RATHKE'S CLEFT CYST [None]
